FAERS Safety Report 5738993-2 (Version None)
Quarter: 2008Q2

REPORT INFORMATION
  Report Type: 
  Country: None (occurrence: None)
  Receive Date: 20080515
  Receipt Date: 20080506
  Transmission Date: 20081010
  Serious: Yes (Other)
  Sender: FDA-Public Use
  Company Number: BE-WYE-H03941108

PATIENT
  Sex: Male
  Weight: 68 kg

DRUGS (6)
  1. RAPAMUNE [Suspect]
     Indication: PROPHYLAXIS AGAINST TRANSPLANT REJECTION
     Route: 048
     Dates: start: 20080128, end: 20080504
  2. MAGNESIUM SULFATE [Concomitant]
     Dosage: 3/D
     Route: 048
  3. NEXIUM [Concomitant]
     Route: 048
  4. URSOCHOL [Concomitant]
     Route: 048
  5. PROGRAF [Concomitant]
     Route: 048
  6. AMLODIPINE [Concomitant]
     Route: 048

REACTIONS (3)
  - COUGH [None]
  - GLOSSITIS [None]
  - PYREXIA [None]
